FAERS Safety Report 8689534 (Version 3)
Quarter: 2012Q4

REPORT INFORMATION
  Report Type: 
  Country: US (occurrence: US)
  Receive Date: 20120727
  Receipt Date: 20120927
  Transmission Date: 20130627
  Serious: Yes (Hospitalization)
  Sender: FDA-Public Use
  Company Number: US-ASTRAZENECA-2011SE78952

PATIENT
  Age: 63 Year
  Sex: Female
  Weight: 79.4 kg

DRUGS (47)
  1. SEROQUEL [Suspect]
     Indication: PARANOIA
     Route: 048
     Dates: start: 201110
  2. SEROQUEL [Suspect]
     Indication: SLEEP DISORDER
     Route: 048
     Dates: start: 201110
  3. SEROQUEL [Suspect]
     Indication: BIPOLAR I DISORDER
     Route: 048
     Dates: start: 201110
  4. SEROQUEL [Suspect]
     Indication: AFFECTIVE DISORDER
     Route: 048
     Dates: start: 201110
  5. SEROQUEL [Suspect]
     Indication: MANIA
     Route: 048
     Dates: start: 201110
  6. SEROQUEL [Suspect]
     Indication: ANXIETY
     Route: 048
     Dates: start: 201110
  7. SEROQUEL [Suspect]
     Indication: SCHIZOPHRENIA
     Route: 048
     Dates: start: 201110
  8. SEROQUEL [Suspect]
     Indication: PARANOIA
     Dosage: AT NIGHT
     Route: 048
  9. SEROQUEL [Suspect]
     Indication: SLEEP DISORDER
     Dosage: AT NIGHT
     Route: 048
  10. SEROQUEL [Suspect]
     Indication: BIPOLAR I DISORDER
     Dosage: AT NIGHT
     Route: 048
  11. SEROQUEL [Suspect]
     Indication: AFFECTIVE DISORDER
     Dosage: AT NIGHT
     Route: 048
  12. SEROQUEL [Suspect]
     Indication: MANIA
     Dosage: AT NIGHT
     Route: 048
  13. SEROQUEL [Suspect]
     Indication: ANXIETY
     Dosage: AT NIGHT
     Route: 048
  14. SEROQUEL [Suspect]
     Indication: SCHIZOPHRENIA
     Dosage: AT NIGHT
     Route: 048
  15. SEROQUEL [Suspect]
     Indication: PARANOIA
     Dosage: DAILY
     Route: 048
     Dates: start: 201201
  16. SEROQUEL [Suspect]
     Indication: SLEEP DISORDER
     Dosage: DAILY
     Route: 048
     Dates: start: 201201
  17. SEROQUEL [Suspect]
     Indication: BIPOLAR I DISORDER
     Dosage: DAILY
     Route: 048
     Dates: start: 201201
  18. SEROQUEL [Suspect]
     Indication: AFFECTIVE DISORDER
     Dosage: DAILY
     Route: 048
     Dates: start: 201201
  19. SEROQUEL [Suspect]
     Indication: MANIA
     Dosage: DAILY
     Route: 048
     Dates: start: 201201
  20. SEROQUEL [Suspect]
     Indication: ANXIETY
     Dosage: DAILY
     Route: 048
     Dates: start: 201201
  21. SEROQUEL [Suspect]
     Indication: SCHIZOPHRENIA
     Dosage: DAILY
     Route: 048
     Dates: start: 201201
  22. SEROQUEL [Suspect]
     Indication: PARANOIA
     Route: 048
  23. SEROQUEL [Suspect]
     Indication: SLEEP DISORDER
     Route: 048
  24. SEROQUEL [Suspect]
     Indication: BIPOLAR I DISORDER
     Route: 048
  25. SEROQUEL [Suspect]
     Indication: AFFECTIVE DISORDER
     Route: 048
  26. SEROQUEL [Suspect]
     Indication: MANIA
     Route: 048
  27. SEROQUEL [Suspect]
     Indication: ANXIETY
     Route: 048
  28. SEROQUEL [Suspect]
     Indication: SCHIZOPHRENIA
     Route: 048
  29. CRESTOR [Suspect]
     Route: 048
  30. TEGRETOL [Concomitant]
  31. TEGRETOL [Concomitant]
  32. LOSARTAN [Concomitant]
     Indication: BLOOD PRESSURE ABNORMAL
  33. PLAVIX [Concomitant]
  34. LIPITOR [Concomitant]
  35. NITROSTAT [Concomitant]
     Indication: CARDIAC DISORDER
  36. FLAXEED OIL [Concomitant]
     Indication: SUPPLEMENTATION THERAPY
  37. FISH OIL [Concomitant]
     Indication: SUPPLEMENTATION THERAPY
  38. CALCIUM WITH VIT D [Concomitant]
  39. METFORMIN [Concomitant]
     Dosage: 1 AM,1 NN, 2 PM TID
  40. METFORMIN [Concomitant]
     Dosage: 500 IN MORNING, 500 AT LUNCH AND 1000 IN THE EVENING
  41. PRENATAL VITAMINS [Concomitant]
     Dosage: DAILY
  42. FLUNISOLIDE NASAL SOLUTION [Concomitant]
     Dosage: DAILY
     Route: 045
  43. ESTRADIOL [Concomitant]
  44. ESTRADIOL [Concomitant]
  45. LYRICA [Concomitant]
     Indication: NEUROPATHY PERIPHERAL
  46. XANAX [Concomitant]
  47. MEDROXYPR AC [Concomitant]
     Dosage: 5MG EVERY THREE MONTHS 1 PILL PER DAY FOR 12 DAYS

REACTIONS (15)
  - Chest pain [Unknown]
  - Abnormal sleep-related event [Unknown]
  - Mental impairment [Unknown]
  - Fear [Unknown]
  - Panic attack [Unknown]
  - Drooling [Unknown]
  - Muscle twitching [Unknown]
  - Hiatus hernia [Unknown]
  - Hallucination, visual [Unknown]
  - Hallucination, auditory [Unknown]
  - Nightmare [Unknown]
  - Insomnia [Unknown]
  - Restlessness [Unknown]
  - Anxiety [Unknown]
  - Drug dose omission [Unknown]
